FAERS Safety Report 10213503 (Version 1)
Quarter: 2014Q2

REPORT INFORMATION
  Report Type: Spontaneous
  Country: US (occurrence: None)
  Receive Date: 20140529
  Receipt Date: 20140529
  Transmission Date: 20141212
  Serious: Yes (Other)
  Sender: FDA-Public Use
  Company Number: 2337033

PATIENT
  Age: 58 Year
  Sex: Male

DRUGS (3)
  1. HYDROMORPHONE HYDROCHLORIDE [Suspect]
     Indication: PROCEDURAL PAIN
     Dosage: LOADING DOSE 1-4 MG IN 1 MG INCREMENTS, AS NECESSARY
     Route: 042
     Dates: start: 20140427
  2. HYDROMORPHONE HYDROCHLORIDE [Suspect]
     Indication: PROCEDURAL PAIN
     Dosage: LOADING DOSE 1-4 MG IN 1 MG INCREMENTS, AS NECESSARY
     Route: 042
     Dates: start: 20140427
  3. HYDROMORPHONE HYDROCHLORIDE [Suspect]
     Indication: PROCEDURAL PAIN
     Dosage: LOADING DOSE 1-4 MG IN 1 MG INCREMENTS, AS NECESSARY
     Route: 042
     Dates: start: 20140427

REACTIONS (5)
  - Incorrect dose administered by device [None]
  - Unresponsive to stimuli [None]
  - Snoring [None]
  - Extra dose administered [None]
  - Circumstance or information capable of leading to medication error [None]
